FAERS Safety Report 6577626-2 (Version None)
Quarter: 2010Q1

REPORT INFORMATION
  Report Type: 
  Country: None (occurrence: None)
  Receive Date: 20100211
  Receipt Date: 20100201
  Transmission Date: 20100710
  Serious: Yes (Hospitalization)
  Sender: FDA-Public Use
  Company Number: PHEH2009US14619

PATIENT
  Sex: Female

DRUGS (2)
  1. EXJADE [Suspect]
     Indication: SICKLE CELL ANAEMIA
     Dosage: 1250 QD
     Route: 048
     Dates: start: 20090302
  2. EXJADE [Suspect]
     Indication: IRON OVERLOAD

REACTIONS (2)
  - PAIN [None]
  - SICKLE CELL ANAEMIA WITH CRISIS [None]
